FAERS Safety Report 9419366 (Version 5)
Quarter: 2014Q1

REPORT INFORMATION
  Report Type: Spontaneous
  Country: US (occurrence: IT)
  Receive Date: 20130725
  Receipt Date: 20140121
  Transmission Date: 20141002
  Serious: Yes (Disabling)
  Sender: FDA-Public Use
  Company Number: IT-009507513-1307ITA012476

PATIENT
  Age: 58 Year
  Sex: Male

DRUGS (8)
  1. ZOCOR [Suspect]
     Indication: LOW DENSITY LIPOPROTEIN INCREASED
     Dosage: 40MG QD
     Route: 048
     Dates: start: 20120803, end: 20130413
  2. ZOCOR [Suspect]
     Dosage: 20 MG, UNK
     Route: 048
     Dates: start: 20120816
  3. ZOCOR [Suspect]
     Dosage: 20 MG, UNK
     Route: 048
     Dates: start: 20121115
  4. ZOCOR [Suspect]
     Dosage: 20 MG, UNK
     Route: 048
     Dates: start: 20130114
  5. PANTECTA [Concomitant]
     Indication: PRODUCT USED FOR UNKNOWN INDICATION
     Dosage: 20 MG, QD
     Route: 048
     Dates: start: 20120803
  6. PANTECTA [Concomitant]
     Dosage: 20 MG, UNK
     Route: 048
     Dates: start: 20120816
  7. PANTECTA [Concomitant]
     Dosage: 20 MG, UNK
     Route: 048
     Dates: start: 20121115
  8. BETAMETHASONE DIPROPIONATE (+) CALCIPOTRIENE [Concomitant]
     Indication: PRODUCT USED FOR UNKNOWN INDICATION
     Dosage: UNK
     Route: 061
     Dates: start: 20121115

REACTIONS (5)
  - Muscle injury [Recovering/Resolving]
  - Lymphoedema [Recovering/Resolving]
  - Venous insufficiency [Unknown]
  - Pain in extremity [Recovering/Resolving]
  - Haematoma [Recovered/Resolved with Sequelae]
